FAERS Safety Report 24409193 (Version 1)
Quarter: 2024Q4

REPORT INFORMATION
  Report Type: Spontaneous
  Country: CN (occurrence: CN)
  Receive Date: 20241008
  Receipt Date: 20241008
  Transmission Date: 20250114
  Serious: Yes (Other)
  Sender: NOVO NORDISK
  Company Number: None

PATIENT
  Age: 38 Year
  Sex: Male
  Weight: 69 kg

DRUGS (3)
  1. RYZODEG 70/30 [Suspect]
     Active Substance: INSULIN ASPART\INSULIN DEGLUDEC
     Indication: Type 2 diabetes mellitus
     Dosage: 24 IU, QD
     Route: 058
     Dates: start: 20240905, end: 20240907
  2. RYZODEG 70/30 [Suspect]
     Active Substance: INSULIN ASPART\INSULIN DEGLUDEC
     Dosage: 18 IU, QD
     Route: 058
     Dates: start: 20240908
  3. CARFLOGLITAZAR SODIUM [Suspect]
     Active Substance: CARFLOGLITAZAR SODIUM
     Indication: Type 2 diabetes mellitus
     Dosage: 32 MG, QD
     Route: 048
     Dates: start: 20240905, end: 20240907

REACTIONS (2)
  - Hypoglycaemia [Recovered/Resolved]
  - Palpitations [Recovered/Resolved]

NARRATIVE: CASE EVENT DATE: 20240907
